APPROVED DRUG PRODUCT: AMIODARONE HYDROCHLORIDE
Active Ingredient: AMIODARONE HYDROCHLORIDE
Strength: 50MG/ML
Dosage Form/Route: INJECTABLE;INJECTION
Application: A204550 | Product #001
Applicant: EUGIA PHARMA SPECIALITIES LTD
Approved: Oct 25, 2017 | RLD: No | RS: No | Type: DISCN